FAERS Safety Report 13831017 (Version 2)
Quarter: 2017Q3

REPORT INFORMATION
  Report Type: Spontaneous
  Country: US (occurrence: US)
  Receive Date: 20170803
  Receipt Date: 20170816
  Transmission Date: 20171127
  Serious: Yes (Hospitalization, Other)
  Sender: FDA-Public Use
  Company Number: US-BAYER-2017-142896

PATIENT
  Age: 56 Year
  Sex: Female

DRUGS (20)
  1. FLOLAN [Suspect]
     Active Substance: EPOPROSTENOL SODIUM
     Indication: COR PULMONALE
     Dosage: UNK
  2. REVATIO [Concomitant]
     Active Substance: SILDENAFIL CITRATE
     Indication: PULMONARY HYPERTENSION
  3. FLOLAN [Suspect]
     Active Substance: EPOPROSTENOL SODIUM
     Indication: COR PULMONALE CHRONIC
     Dosage: 19 NG/KG/MIN,
     Route: 042
  4. FLOLAN [Suspect]
     Active Substance: EPOPROSTENOL SODIUM
     Indication: COR PULMONALE
     Dosage: UNK
     Dates: start: 20101105
  5. FLOLAN [Suspect]
     Active Substance: EPOPROSTENOL SODIUM
     Indication: COR PULMONALE
     Dosage: 17 NG/KG/MIN
  6. FLOLAN [Suspect]
     Active Substance: EPOPROSTENOL SODIUM
     Indication: COR PULMONALE
     Dosage: 17NG/KG/MIN
  7. FLOLAN [Suspect]
     Active Substance: EPOPROSTENOL SODIUM
     Indication: COR PULMONALE
     Dosage: UNK
     Dates: start: 20130107
  8. FLOLAN [Suspect]
     Active Substance: EPOPROSTENOL SODIUM
     Indication: COR PULMONALE
     Dosage: 15NG/KG/MIN
     Dates: start: 20101101
  9. FLOLAN [Suspect]
     Active Substance: EPOPROSTENOL SODIUM
     Indication: COR PULMONALE
     Dosage: UNK
  10. FLOLAN [Suspect]
     Active Substance: EPOPROSTENOL SODIUM
     Indication: COR PULMONALE
     Dosage: UNK
  11. ALEVE [Suspect]
     Active Substance: NAPROXEN SODIUM
     Indication: HEADACHE
     Dosage: UNK
  12. FLOLAN [Suspect]
     Active Substance: EPOPROSTENOL SODIUM
     Indication: COR PULMONALE
     Dosage: 20 DF, CO
     Dates: start: 20101105
  13. FLOLAN [Suspect]
     Active Substance: EPOPROSTENOL SODIUM
     Indication: COR PULMONALE
     Dosage: UNK
     Dates: start: 20101105
  14. FLOLAN [Suspect]
     Active Substance: EPOPROSTENOL SODIUM
     Indication: COR PULMONALE
     Dosage: UNK
     Dates: start: 20101105
  15. FLOLAN [Suspect]
     Active Substance: EPOPROSTENOL SODIUM
     Indication: COR PULMONALE
     Dosage: UNK
     Dates: start: 20130107
  16. FLOLAN [Suspect]
     Active Substance: EPOPROSTENOL SODIUM
     Indication: COR PULMONALE
     Dosage: 17/NG/KG/MIN
     Dates: start: 20130307
  17. FLOLAN [Suspect]
     Active Substance: EPOPROSTENOL SODIUM
     Indication: COR PULMONALE
     Dosage: UNK
     Dates: start: 20101105
  18. FLOLAN [Suspect]
     Active Substance: EPOPROSTENOL SODIUM
     Indication: COR PULMONALE
     Dosage: 17 DF, CO
  19. FLOLAN [Suspect]
     Active Substance: EPOPROSTENOL SODIUM
     Indication: COR PULMONALE
     Dosage: 17 NG/KG/MIN, CO
     Route: 042
  20. FLOLAN [Suspect]
     Active Substance: EPOPROSTENOL SODIUM
     Indication: COR PULMONALE
     Dosage: UNK
     Dates: start: 20160823

REACTIONS (27)
  - Radiation pneumonitis [None]
  - Pneumonia [Unknown]
  - Platelet count decreased [None]
  - Catheter site pain [Unknown]
  - Malaise [Unknown]
  - Pneumonia viral [Unknown]
  - Device related infection [Recovered/Resolved]
  - Uterine leiomyoma [Unknown]
  - Headache [Unknown]
  - Application site irritation [Unknown]
  - Pancytopenia [Unknown]
  - Pulmonary arterial hypertension [Unknown]
  - Thrombosis in device [Recovered/Resolved]
  - Red blood cell count decreased [Unknown]
  - Anaemia [Unknown]
  - Pyrexia [Unknown]
  - Gastroenteritis radiation [None]
  - Hospitalisation [Recovered/Resolved]
  - Device leakage [Unknown]
  - Device breakage [Unknown]
  - Dyspnoea [Unknown]
  - Feeling abnormal [Unknown]
  - Catheterisation cardiac [Unknown]
  - Hospitalisation [None]
  - Neutropenia [Unknown]
  - Oxygen saturation decreased [Unknown]
  - Pneumonitis [None]

NARRATIVE: CASE EVENT DATE: 20131003
